FAERS Safety Report 7868566-7 (Version None)
Quarter: 2011Q4

REPORT INFORMATION
  Report Type: 
  Country: None (occurrence: None)
  Receive Date: 20111028
  Receipt Date: 20101214
  Transmission Date: 20120403
  Serious: No
  Sender: FDA-Public Use
  Company Number: US-AMGEN-USASP2010009328

PATIENT
  Sex: Female

DRUGS (4)
  1. BONIVA [Concomitant]
  2. ENBREL [Suspect]
     Indication: RHEUMATOID ARTHRITIS
     Dosage: 50 MG, QWK
  3. METHOTREXATE [Concomitant]
  4. FOLIC ACID [Concomitant]

REACTIONS (4)
  - DYSPHAGIA [None]
  - MUCOUS MEMBRANE DISORDER [None]
  - BRONCHITIS [None]
  - SENSATION OF FOREIGN BODY [None]
